FAERS Safety Report 25452438 (Version 6)
Quarter: 2025Q3

REPORT INFORMATION
  Report Type: Spontaneous
  Country: US (occurrence: US)
  Receive Date: 20250618
  Receipt Date: 20250923
  Transmission Date: 20251021
  Serious: No
  Sender: PFIZER
  Company Number: US-PFIZER INC-202500121838

PATIENT
  Age: 15 Year
  Sex: Male
  Weight: 61.23 kg

DRUGS (1)
  1. GENOTROPIN [Suspect]
     Active Substance: SOMATROPIN
     Indication: Growth hormone deficiency
     Route: 058
     Dates: start: 20250530

REACTIONS (6)
  - Device mechanical issue [Unknown]
  - Device information output issue [Unknown]
  - Device leakage [Unknown]
  - Wrong technique in device usage process [Unknown]
  - Device difficult to use [Unknown]
  - Drug dose omission by device [Unknown]

NARRATIVE: CASE EVENT DATE: 20250101
